FAERS Safety Report 16584869 (Version 1)
Quarter: 2019Q3

REPORT INFORMATION
  Report Type: Spontaneous
  Country: US (occurrence: US)
  Receive Date: 20190716
  Receipt Date: 20190716
  Transmission Date: 20191004
  Serious: No
  Sender: FDA-Public Use
  Company Number: None

PATIENT
  Age: 39 Year
  Sex: Female
  Weight: 59.85 kg

DRUGS (1)
  1. ATOMOXETINE 40MG CAPSULES [Suspect]
     Active Substance: ATOMOXETINE
     Route: 048
     Dates: start: 20180526

REACTIONS (1)
  - Tongue discolouration [None]

NARRATIVE: CASE EVENT DATE: 20180526
